FAERS Safety Report 4370927-8 (Version None)
Quarter: 2004Q2

REPORT INFORMATION
  Report Type: 
  Country: None (occurrence: None)
  Receive Date: 20040601
  Receipt Date: 20040426
  Transmission Date: 20050107
  Serious: Yes (Hospitalization)
  Sender: FDA-Public Use
  Company Number: DSA_24311_2004

PATIENT
  Age: 28 Year
  Sex: Female

DRUGS (5)
  1. LORAZEPAM [Suspect]
     Dosage: 10 MG ONCE PO
     Route: 048
     Dates: start: 20040421, end: 20040421
  2. LORAZEPAM [Suspect]
     Dosage: 1.5 MG QD PO
     Route: 048
  3. NIPOLEPT ^AVENTIS^ [Suspect]
     Dosage: 500 MG ONCE PO
     Route: 048
     Dates: start: 20040421, end: 20040421
  4. RED WINE [Suspect]
     Dates: start: 20040421, end: 20040421
  5. NIPOLEPT ^AVENTIS^ [Suspect]
     Dosage: 75 MG QD PO
     Route: 048

REACTIONS (6)
  - BLOOD GLUCOSE INCREASED [None]
  - FATIGUE [None]
  - FEELING OF DESPAIR [None]
  - INTENTIONAL SELF-INJURY [None]
  - MIOSIS [None]
  - MULTIPLE DRUG OVERDOSE INTENTIONAL [None]
